FAERS Safety Report 10213136 (Version 1)
Quarter: 2014Q2

REPORT INFORMATION
  Report Type: Spontaneous
  Country: GB (occurrence: GB)
  Receive Date: 20140603
  Receipt Date: 20140603
  Transmission Date: 20141212
  Serious: Yes (Hospitalization)
  Sender: FDA-Public Use
  Company Number: GB-009507513-1406GBR000208

PATIENT
  Age: 67 Year
  Sex: Male

DRUGS (2)
  1. JANUVIA [Suspect]
     Dosage: 100 MG, UNK
     Route: 048
  2. JANUVIA [Suspect]
     Dosage: 50 MG, UNK
     Route: 048

REACTIONS (4)
  - Infection [Recovered/Resolved]
  - Hyperglycaemia [Recovered/Resolved]
  - Renal impairment [Recovered/Resolved]
  - Glycosylated haemoglobin increased [Unknown]
